FAERS Safety Report 19751393 (Version 1)
Quarter: 2021Q3

REPORT INFORMATION
  Report Type: Spontaneous
  Country: US (occurrence: US)
  Receive Date: 20210827
  Receipt Date: 20210827
  Transmission Date: 20211014
  Serious: No
  Sender: FDA-Public Use
  Company Number: US-SA-2021SA281003

PATIENT

DRUGS (1)
  1. SELSUN [Suspect]
     Active Substance: SELENIUM SULFIDE

REACTIONS (1)
  - Hair texture abnormal [Unknown]
